FAERS Safety Report 4699981-0 (Version None)
Quarter: 2005Q2

REPORT INFORMATION
  Report Type: 
  Country: None (occurrence: None)
  Receive Date: 20050623
  Receipt Date: 20050609
  Transmission Date: 20051028
  Serious: Yes (Hospitalization)
  Sender: FDA-Public Use
  Company Number: 199759

PATIENT
  Age: 47 Year
  Sex: Female

DRUGS (12)
  1. AVONEX [Suspect]
     Indication: RELAPSING-REMITTING MULTIPLE SCLEROSIS
     Dosage: 30 UG;QW;IM
     Route: 030
     Dates: start: 20030101
  2. AVONEX [Suspect]
     Indication: RELAPSING-REMITTING MULTIPLE SCLEROSIS
     Dosage: 30 UG;QW;IM
     Route: 030
     Dates: start: 20030726
  3. BACTRIM DS [Concomitant]
  4. PHENAZOPYRIDINE HCL TAB [Concomitant]
  5. TESSALON [Concomitant]
  6. GUAIFENESIN [Concomitant]
  7. KENALOG [Concomitant]
  8. MARCAINE [Concomitant]
  9. OMNIPAQUE ^AMERSHAM^ [Concomitant]
  10. FENTANYL [Concomitant]
  11. VERSED [Concomitant]
  12. LIDOCAINE 1% [Concomitant]

REACTIONS (11)
  - BACK PAIN [None]
  - CEREBROSPINAL FLUID LEAKAGE [None]
  - DURAL TEAR [None]
  - EXOSTOSIS [None]
  - HYPERHIDROSIS [None]
  - HYPOTENSION [None]
  - INTERVERTEBRAL DISC DISPLACEMENT [None]
  - INTERVERTEBRAL DISC PROTRUSION [None]
  - LUMBAR SPINAL STENOSIS [None]
  - NAUSEA [None]
  - SPINAL DECOMPRESSION [None]
